FAERS Safety Report 9411869 (Version 2)
Quarter: 2013Q4

REPORT INFORMATION
  Report Type: Spontaneous
  Country: FR (occurrence: FR)
  Receive Date: 20130722
  Receipt Date: 20131014
  Transmission Date: 20140711
  Serious: Yes (Other)
  Sender: FDA-Public Use
  Company Number: PHHY2013FR076572

PATIENT
  Age: 59 Year
  Sex: Male

DRUGS (13)
  1. VOLTARENE [Suspect]
     Dosage: 100 MG, DAILY
     Route: 048
  2. DEBRIDAT [Suspect]
     Dosage: 300 MG, DAILY
     Route: 048
  3. MOVICOL [Suspect]
     Dosage: 20 MG, DAILY
     Route: 048
  4. UVEDOSE [Suspect]
     Dosage: 1 DF, TRIMESTER
     Route: 048
  5. LORAZEPAM [Suspect]
     Dosage: 30 MG, UNK
     Route: 048
  6. CRESTOR [Suspect]
     Dosage: 5 MG, DAILY
     Route: 048
  7. ISENTRESS [Suspect]
     Indication: HIV INFECTION
     Dosage: 400 MG, BID
     Route: 048
     Dates: start: 20100609
  8. NORVIR [Suspect]
     Indication: HIV INFECTION
     Dosage: 100 MG, DAILY
     Route: 048
     Dates: start: 20100609, end: 20130709
  9. REYATAZ [Suspect]
     Indication: HIV INFECTION
     Dosage: 200 MG, DAILY
     Route: 048
     Dates: start: 20100609, end: 20130709
  10. EDURANT [Concomitant]
     Indication: LIPODYSTROPHY ACQUIRED
     Dosage: UNK UKN, UNK
  11. EDURANT [Concomitant]
     Indication: HIV INFECTION
     Dosage: UNK UKN, UNK
     Dates: start: 20130709
  12. CELSENTRI [Concomitant]
     Indication: LIPODYSTROPHY ACQUIRED
     Dosage: UNK UKN, UNK
  13. CELSENTRI [Concomitant]
     Indication: HIV INFECTION
     Dosage: UNK UKN, UNK
     Dates: start: 20130709

REACTIONS (2)
  - Lipodystrophy acquired [Recovered/Resolved]
  - Weight increased [Recovered/Resolved]
